FAERS Safety Report 8178191-9 (Version None)
Quarter: 2012Q1

REPORT INFORMATION
  Report Type: 
  Country: None (occurrence: None)
  Receive Date: 20120301
  Receipt Date: 20120224
  Transmission Date: 20120608
  Serious: Yes (Hospitalization)
  Sender: FDA-Public Use
  Company Number: CZ-CELGENEUS-217-21880-12021722

PATIENT
  Sex: Female
  Weight: 52 kg

DRUGS (30)
  1. CARFILZOMIB [Suspect]
     Indication: MYELOMA RECURRENCE
     Route: 065
     Dates: start: 20110523, end: 20110524
  2. CARFILZOMIB [Suspect]
     Route: 065
     Dates: start: 20110530, end: 20110607
  3. DEXAMETHASONE [Suspect]
     Route: 065
     Dates: start: 20120130, end: 20120206
  4. CARFILZOMIB [Suspect]
     Route: 065
     Dates: start: 20120130, end: 20120214
  5. CALCIUM [Concomitant]
     Dosage: 500 MILLIGRAM
     Route: 048
     Dates: start: 20120215
  6. CALCIUM CARBONATE [Concomitant]
     Indication: OSTEOPOROSIS PROPHYLAXIS
     Dosage: 1695 MILLIGRAM
     Route: 048
     Dates: start: 20110509
  7. KALNORMIN [Concomitant]
     Dosage: 3 GRAM
     Route: 048
     Dates: start: 20110621
  8. BUPRENORPHINE [Concomitant]
     Dosage: 5 MILLIGRAM
     Route: 062
     Dates: start: 20100820
  9. SODIUM HYDROGENOPHOSPHATE [Concomitant]
     Route: 041
     Dates: start: 20120110, end: 20120131
  10. WARFARIN SODIUM [Concomitant]
     Dosage: 5 MILLIGRAM
     Route: 048
     Dates: start: 20090812
  11. REVLIMID [Suspect]
     Dosage: 25 MILLIGRAM
     Route: 048
     Dates: start: 20120102, end: 20120122
  12. HERPESIN [Concomitant]
     Indication: ANTIVIRAL PROPHYLAXIS
     Dosage: 400 MILLIGRAM
     Route: 048
     Dates: start: 20110522
  13. LANSOPRAZOLE [Concomitant]
     Indication: INHIBITORY DRUG INTERACTION
     Dosage: 15 MILLIGRAM
     Route: 048
     Dates: start: 20110522
  14. MODURETIC 5-50 [Concomitant]
     Indication: HYPERTENSION
     Dosage: 50 MILLIGRAM
     Route: 048
     Dates: start: 20110923
  15. REMERON [Concomitant]
     Indication: DEPRESSION
     Dosage: 30 MILLIGRAM
     Route: 048
     Dates: start: 20090401
  16. CERUCAL [Concomitant]
     Indication: NAUSEA
     Dosage: 30 MILLIGRAM
     Route: 048
     Dates: start: 20110919
  17. CLINDAMYCIN HCL [Concomitant]
     Indication: OSTEONECROSIS
     Dosage: 900 MILLIGRAM
     Route: 048
     Dates: start: 20110926
  18. DETRALEX [Concomitant]
     Dosage: 120 MILLIGRAM
     Route: 048
     Dates: start: 20110211
  19. LEXAURIN [Concomitant]
     Indication: PROPHYLAXIS
     Dosage: 13 MILLIGRAM
     Route: 048
     Dates: start: 20110509
  20. MEGACE [Concomitant]
     Indication: PROPHYLAXIS
     Dosage: 20 MILLILITER
     Route: 048
     Dates: start: 20110912
  21. SODIUM HYDROGENOPHOSPHATE [Concomitant]
     Indication: PROPHYLAXIS
     Dosage: 40 MILLILITER
     Route: 041
     Dates: start: 20120206, end: 20120206
  22. SODIUM HYDROGENOPHOSPHATE [Concomitant]
     Dosage: 20 MILLILITER
     Route: 041
     Dates: start: 20120207, end: 20120207
  23. SPIRONOLACTONE [Concomitant]
     Indication: HYPERTENSION
     Route: 048
     Dates: start: 20120102
  24. REVLIMID [Suspect]
     Indication: MYELOMA RECURRENCE
     Dosage: 25 MILLIGRAM
     Route: 048
     Dates: start: 20110523, end: 20110612
  25. PARALEN [Concomitant]
     Dosage: 500 MILLIGRAM
     Route: 048
     Dates: start: 20100820
  26. DEXAMETHASONE [Suspect]
     Indication: MYELOMA RECURRENCE
     Route: 065
     Dates: start: 20110523, end: 20110613
  27. FRAMYKOIN [Concomitant]
     Dosage: 2 MILLIGRAM
     Route: 061
     Dates: start: 20111205
  28. REVLIMID [Suspect]
     Dosage: 25 MILLIGRAM
     Route: 048
     Dates: start: 20120130, end: 20120211
  29. KALIUM CHLORATUM [Concomitant]
     Route: 041
     Dates: start: 20120110, end: 20120131
  30. KALIUM CHLORATUM [Concomitant]
     Indication: PROPHYLAXIS
     Route: 041
     Dates: start: 20120206, end: 20120207

REACTIONS (1)
  - ALTERED STATE OF CONSCIOUSNESS [None]
